FAERS Safety Report 9805614 (Version 1)
Quarter: 2014Q1

REPORT INFORMATION
  Report Type: Spontaneous
  Country: US (occurrence: None)
  Receive Date: 20140108
  Receipt Date: 20140108
  Transmission Date: 20141002
  Serious: Yes (Hospitalization)
  Sender: FDA-Public Use
  Company Number: None

PATIENT
  Age: 74 Year
  Sex: Male
  Weight: 90 kg

DRUGS (9)
  1. HUMIRA 40MG ABBVIE [Suspect]
     Indication: ANKYLOSING SPONDYLITIS
     Dosage: 40 MG SYRINGE
     Route: 058
     Dates: start: 201307, end: 201310
  2. VITAMIN D3 [Concomitant]
  3. VITAMIN B12 [Concomitant]
  4. SULFASALAZIN [Concomitant]
  5. RESTASIS [Concomitant]
  6. PRAVASTATIN [Concomitant]
  7. PRAVACHOL [Concomitant]
  8. GLIPIZIDE [Concomitant]
  9. LISINOPRIL [Concomitant]

REACTIONS (1)
  - Myocardial infarction [None]
